FAERS Safety Report 17851783 (Version 2)
Quarter: 2020Q3

REPORT INFORMATION
  Report Type: Report from Study
  Country: FR (occurrence: FR)
  Receive Date: 20200602
  Receipt Date: 20200729
  Transmission Date: 20201103
  Serious: Yes (Hospitalization)
  Sender: FDA-Public Use
  Company Number: FR-ROCHE-2606586

PATIENT
  Age: 32 Year
  Sex: Female

DRUGS (18)
  1. SPAGULAX [Concomitant]
     Active Substance: PLANTAGO OVATA SEED
     Route: 048
     Dates: start: 20190401
  2. DIPROSONE [Concomitant]
     Active Substance: BETAMETHASONE DIPROPIONATE
     Indication: RELAPSING MULTIPLE SCLEROSIS
     Dates: end: 20190603
  3. UVEDOSE [Concomitant]
     Active Substance: CHOLECALCIFEROL
     Indication: PROPHYLAXIS
     Dosage: DOSE? 100,000 IU
     Route: 048
     Dates: start: 20191209
  4. BOTULINUM TOXIN [Concomitant]
     Active Substance: BOTULINUM TOXIN NOS
     Dates: start: 20190411
  5. FUNGIZONE [Concomitant]
     Active Substance: AMPHOTERICIN B
     Indication: RELAPSING MULTIPLE SCLEROSIS
     Route: 048
     Dates: start: 20191012, end: 20191206
  6. AERIUS [Concomitant]
     Indication: RELAPSING MULTIPLE SCLEROSIS
     Route: 048
     Dates: start: 20190315
  7. CASPOFUNGINE [Concomitant]
     Active Substance: CASPOFUNGIN
     Route: 042
     Dates: start: 20200201, end: 20200209
  8. LEXOMIL [Concomitant]
     Active Substance: BROMAZEPAM
     Indication: RELAPSING MULTIPLE SCLEROSIS
     Route: 048
  9. PNEUMOVAX VACCIN [Concomitant]
     Indication: PROPHYLAXIS
     Route: 030
     Dates: start: 20190509, end: 20190509
  10. CASPOFUNGINE [Concomitant]
     Active Substance: CASPOFUNGIN
     Route: 042
     Dates: start: 20200213, end: 20200218
  11. MINIDRIL [Concomitant]
     Active Substance: ETHINYL ESTRADIOL\LEVONORGESTREL
     Route: 048
     Dates: start: 20181228
  12. DYMISTA [Concomitant]
     Active Substance: AZELASTINE HYDROCHLORIDE\FLUTICASONE PROPIONATE
     Indication: RELAPSING MULTIPLE SCLEROSIS
     Dates: start: 20190328
  13. OCRELIZUMAB. [Suspect]
     Active Substance: OCRELIZUMAB
     Indication: RELAPSING MULTIPLE SCLEROSIS
     Dosage: INITIAL DOSE OF 300 MG ON DAY 1 AND DAY 15, FOLLOWED BY 600 MG EVERY 24 WEEKS?MOST RECENT DOSE ON 11
     Route: 042
     Dates: start: 20181220
  14. DIOSMINE [Concomitant]
     Active Substance: DIOSMIN
     Indication: RELAPSING MULTIPLE SCLEROSIS
     Route: 048
     Dates: start: 20190401
  15. OXYBUTYNINE [Concomitant]
     Active Substance: OXYBUTYNIN CHLORIDE
     Route: 048
     Dates: start: 20190619
  16. ZELITREX [Concomitant]
     Active Substance: VALACYCLOVIR HYDROCHLORIDE
     Indication: RELAPSING MULTIPLE SCLEROSIS
     Route: 048
     Dates: start: 20190315
  17. MIANSERINE [Concomitant]
     Active Substance: MIANSERIN HYDROCHLORIDE
     Indication: RELAPSING MULTIPLE SCLEROSIS
     Route: 048
     Dates: start: 20190528
  18. CIPROFLOXACINE [Concomitant]
     Active Substance: CIPROFLOXACIN
     Route: 048
     Dates: start: 20191013, end: 20191028

REACTIONS (3)
  - Pyelonephritis [Recovered/Resolved]
  - Phlebitis [Recovered/Resolved]
  - Febrile neutropenia [Recovered/Resolved]

NARRATIVE: CASE EVENT DATE: 20191216
